FAERS Safety Report 15226881 (Version 2)
Quarter: 2018Q3

REPORT INFORMATION
  Report Type: Spontaneous
  Country: US (occurrence: US)
  Receive Date: 20180801
  Receipt Date: 20180903
  Transmission Date: 20181010
  Serious: Yes (Hospitalization)
  Sender: FDA-Public Use
  Company Number: US-PFIZER INC-2018307651

PATIENT
  Age: 16 Year
  Sex: Female
  Weight: 34.3 kg

DRUGS (15)
  1. TEDIZOLID [Concomitant]
     Active Substance: TEDIZOLID
     Dosage: UNK
     Route: 048
     Dates: start: 201704, end: 20171219
  2. TEDIZOLID [Concomitant]
     Active Substance: TEDIZOLID
     Dosage: UNK (REDUCED THE DOSE OF TEDIZOLID BY HALF)
     Dates: start: 20171110
  3. AZITHROMYCIN ANHYDROUS. [Concomitant]
     Active Substance: AZITHROMYCIN ANHYDROUS
     Dosage: UNK
     Dates: start: 20180205
  4. CLOFAZIMINE [Concomitant]
     Active Substance: CLOFAZIMINE
     Indication: IMMUNOSUPPRESSION
     Dosage: UNK
     Dates: start: 20180511, end: 20180709
  5. POSACONAZOLE [Concomitant]
     Active Substance: POSACONAZOLE
     Dosage: UNK
     Dates: start: 20180205, end: 20180405
  6. IMIPENEM [Concomitant]
     Active Substance: IMIPENEM
     Dosage: UNK
  7. AMIKACIN. [Concomitant]
     Active Substance: AMIKACIN
     Indication: IMMUNOSUPPRESSION
     Dosage: UNK
     Dates: start: 201704
  8. TIGECYCLINE. [Suspect]
     Active Substance: TIGECYCLINE
     Dosage: 50 MG, 2X/DAY (EVERY TWELVE HOURS)
     Route: 042
     Dates: start: 201704, end: 20180708
  9. CLOFAZIMINE [Concomitant]
     Active Substance: CLOFAZIMINE
     Indication: MYCOBACTERIAL INFECTION
     Dosage: 50 MG, DAILY
     Route: 048
     Dates: start: 20171127, end: 20180416
  10. TACROLIMUS. [Concomitant]
     Active Substance: TACROLIMUS
     Indication: IMMUNOSUPPRESSION
     Dosage: UNK
     Dates: start: 20180203, end: 20180504
  11. CYCLOSPORINE. [Concomitant]
     Active Substance: CYCLOSPORINE
     Indication: IMMUNOSUPPRESSION
     Dosage: UNK
     Dates: start: 20180428, end: 20180713
  12. IMIPENEM AND CILASTATIN [Concomitant]
     Active Substance: CILASTATIN SODIUM\IMIPENEM
     Dosage: UNK
     Dates: start: 20171114, end: 20180619
  13. TIGECYCLINE. [Suspect]
     Active Substance: TIGECYCLINE
     Indication: MYCOBACTERIAL INFECTION
     Dosage: 50 MG, 2X/DAY (EVERY TWELVE HOURS)
     Route: 042
     Dates: start: 20170415, end: 20180709
  14. PREDNISONE. [Concomitant]
     Active Substance: PREDNISONE
     Indication: IMMUNOSUPPRESSION
     Dosage: UNK
     Dates: start: 20180203
  15. MYCOPHENOLATE [Concomitant]
     Active Substance: MYCOPHENOLIC ACID
     Dosage: UNK
     Dates: start: 20180203

REACTIONS (7)
  - Hypertriglyceridaemia [Recovered/Resolved]
  - Diarrhoea [Unknown]
  - Thrombocytopenia [Unknown]
  - Pyrexia [Unknown]
  - Hepatitis cholestatic [Unknown]
  - Adenovirus infection [Recovered/Resolved]
  - Blood triglycerides increased [Recovering/Resolving]

NARRATIVE: CASE EVENT DATE: 20180328
